FAERS Safety Report 18927061 (Version 2)
Quarter: 2021Q1

REPORT INFORMATION
  Report Type: Spontaneous
  Country: US (occurrence: US)
  Receive Date: 20210223
  Receipt Date: 20210301
  Transmission Date: 20210420
  Serious: Yes (Other)
  Sender: FDA-Public Use
  Company Number: US-GLAXOSMITHKLINE-US2021GSK036989

PATIENT
  Sex: Male

DRUGS (7)
  1. RANITIDINE. [Suspect]
     Active Substance: RANITIDINE
     Indication: RENAL TRANSPLANT
     Dosage: 150 MG, QD
     Route: 065
     Dates: start: 200312, end: 201907
  2. ZANTAC [Suspect]
     Active Substance: RANITIDINE HYDROCHLORIDE
     Indication: RENAL TRANSPLANT
     Dosage: 150 MG, QD
     Route: 065
     Dates: start: 200312, end: 201907
  3. ZANTAC [Suspect]
     Active Substance: RANITIDINE HYDROCHLORIDE
     Indication: RENAL TRANSPLANT
     Dosage: 150 MG, QD
     Route: 065
     Dates: start: 200312, end: 201907
  4. RANITIDINE CAPSULE [Suspect]
     Active Substance: RANITIDINE
     Indication: RENAL TRANSPLANT
     Dosage: 150 MG, QD
     Route: 065
     Dates: start: 200312, end: 201907
  5. ZANTAC [Suspect]
     Active Substance: RANITIDINE HYDROCHLORIDE
     Indication: RENAL TRANSPLANT
     Dosage: 150 MG, QD
     Route: 065
     Dates: start: 200312, end: 201907
  6. RANITIDINE. [Suspect]
     Active Substance: RANITIDINE
     Indication: RENAL TRANSPLANT
     Dosage: 150 MG, QD
     Route: 065
     Dates: start: 200312, end: 201907
  7. RANITIDINE. [Suspect]
     Active Substance: RANITIDINE
     Indication: RENAL TRANSPLANT
     Dosage: 150 MG, QD
     Route: 065
     Dates: start: 200312, end: 201907

REACTIONS (1)
  - Prostate cancer [Unknown]
